FAERS Safety Report 11073786 (Version 1)
Quarter: 2015Q2

REPORT INFORMATION
  Report Type: Report from Study
  Country: US (occurrence: US)
  Receive Date: 20150428
  Receipt Date: 20150428
  Transmission Date: 20150821
  Serious: Yes (Death, Hospitalization)
  Sender: FDA-Public Use
  Company Number: US-ACTELION-A-NJ2015-116505

PATIENT
  Age: 9 Month
  Sex: Male

DRUGS (3)
  1. TRACLEER [Suspect]
     Active Substance: BOSENTAN\BOSENTAN MONOHYDRATE
     Indication: PULMONARY ARTERIAL HYPERTENSION
     Dosage: 12.5 MG, BID
     Route: 048
     Dates: start: 20150323
  2. TRACLEER [Suspect]
     Active Substance: BOSENTAN\BOSENTAN MONOHYDRATE
     Dosage: 6.25 MG, BID
     Route: 048
     Dates: start: 20150316, end: 20150322
  3. TRACLEER [Suspect]
     Active Substance: BOSENTAN\BOSENTAN MONOHYDRATE
     Dosage: 3 MG, BID
     Route: 048
     Dates: start: 20150224, end: 20150315

REACTIONS (6)
  - Bronchopulmonary aspergillosis [Unknown]
  - Aspergillus infection [Unknown]
  - Pyrexia [Unknown]
  - Infection [Unknown]
  - Kidney infection [Unknown]
  - Cardiac failure [Fatal]
